FAERS Safety Report 18123909 (Version 2)
Quarter: 2020Q3

REPORT INFORMATION
  Report Type: Spontaneous
  Country: US (occurrence: US)
  Receive Date: 20200807
  Receipt Date: 20200807
  Transmission Date: 20201103
  Serious: No
  Sender: FDA-Public Use
  Company Number: US-TECHDOW-2020TECHDOW000422

PATIENT
  Age: 71 Year
  Sex: Female
  Weight: 70.3 kg

DRUGS (4)
  1. TICAGRELOR. [Concomitant]
     Active Substance: TICAGRELOR
  2. TIROFIBAN HYDROCHLORIDE. [Concomitant]
     Active Substance: TIROFIBAN HYDROCHLORIDE
     Dosage: 33ML, DRIP 6.3ML/HR
  3. HEPARIN SODIUM INJECTION, USP (PARABENS WITH NACL) [Suspect]
     Active Substance: HEPARIN SODIUM
     Dosage: 4000UNIT, FROM ED 5 UNITS/KG/HR
  4. HEPARIN [Concomitant]
     Active Substance: HEPARIN SODIUM

REACTIONS (1)
  - Drug ineffective [None]
